FAERS Safety Report 6795961-X (Version None)
Quarter: 2010Q2

REPORT INFORMATION
  Report Type: 
  Country: None (occurrence: None)
  Receive Date: 20100625
  Receipt Date: 20100618
  Transmission Date: 20101027
  Serious: Yes (Other)
  Sender: FDA-Public Use
  Company Number: B0662240A

PATIENT
  Age: 53 Year
  Sex: Female

DRUGS (5)
  1. MELPHALAN HYDROCHLORIDE [Suspect]
     Indication: MULTIPLE MYELOMA
  2. VINCRISTINE [Suspect]
     Indication: MULTIPLE MYELOMA
  3. ADRIAMYCIN PFS [Suspect]
     Indication: MULTIPLE MYELOMA
  4. DEXAMETHASONE [Suspect]
     Indication: MULTIPLE MYELOMA
  5. AREDIA [Suspect]

REACTIONS (7)
  - CONDITION AGGRAVATED [None]
  - LIP ULCERATION [None]
  - MUCOSAL INFLAMMATION [None]
  - ORAL CANDIDIASIS [None]
  - ORAL HERPES [None]
  - RENAL FAILURE [None]
  - TONGUE DISORDER [None]
